FAERS Safety Report 6805300-3 (Version None)
Quarter: 2010Q2

REPORT INFORMATION
  Report Type: 
  Country: None (occurrence: None)
  Receive Date: 20100628
  Receipt Date: 20071108
  Transmission Date: 20101027
  Serious: No
  Sender: FDA-Public Use
  Company Number: US-PFIZER INC-2007080070

PATIENT
  Sex: Female
  Weight: 34.02 kg

DRUGS (3)
  1. GEODON [Suspect]
     Indication: BIPOLAR DISORDER
     Route: 048
     Dates: start: 20070906, end: 20070920
  2. LITHIUM [Concomitant]
  3. TRAZODONE HYDROCHLORIDE [Concomitant]
     Indication: SLEEP DISORDER

REACTIONS (8)
  - ABNORMAL DREAMS [None]
  - ANXIETY [None]
  - CRYING [None]
  - FATIGUE [None]
  - INSOMNIA [None]
  - MUSCLE TIGHTNESS [None]
  - NERVOUSNESS [None]
  - SOMNOLENCE [None]
